FAERS Safety Report 7553238-9 (Version None)
Quarter: 2011Q2

REPORT INFORMATION
  Report Type: 
  Country: None (occurrence: None)
  Receive Date: 20110617
  Receipt Date: 20110608
  Transmission Date: 20111010
  Serious: No
  Sender: FDA-Public Use
  Company Number: US-BIOGENIDEC-2010BI021786

PATIENT
  Age: 54 Year
  Sex: Male

DRUGS (2)
  1. TYSABRI [Suspect]
     Indication: MULTIPLE SCLEROSIS
     Route: 042
     Dates: start: 20060915, end: 20070115
  2. TYSABRI [Suspect]
     Route: 042
     Dates: start: 20070507, end: 20110505

REACTIONS (8)
  - BACK PAIN [None]
  - WEIGHT DECREASED [None]
  - DEPRESSED MOOD [None]
  - PAIN IN EXTREMITY [None]
  - PAIN [None]
  - MULTIPLE SCLEROSIS RELAPSE [None]
  - SUICIDAL IDEATION [None]
  - STRESS [None]
